FAERS Safety Report 15084490 (Version 3)
Quarter: 2018Q3

REPORT INFORMATION
  Report Type: Spontaneous
  Country: US (occurrence: US)
  Receive Date: 20180628
  Receipt Date: 20180908
  Transmission Date: 20181010
  Serious: No
  Sender: FDA-Public Use
  Company Number: US-009507513-1806USA006951

PATIENT
  Sex: Female

DRUGS (2)
  1. PROVENTIL [Suspect]
     Active Substance: ALBUTEROL
     Dosage: UNK
     Dates: start: 2018
  2. PROVENTIL [Suspect]
     Active Substance: ALBUTEROL
     Dosage: UNK
     Dates: start: 20180607

REACTIONS (3)
  - Product container issue [Unknown]
  - No adverse event [Unknown]
  - Product use issue [Unknown]

NARRATIVE: CASE EVENT DATE: 201806
